FAERS Safety Report 6583304-6 (Version None)
Quarter: 2010Q1

REPORT INFORMATION
  Report Type: 
  Country: None (occurrence: None)
  Receive Date: 20100216
  Receipt Date: 20100209
  Transmission Date: 20100710
  Serious: Yes (Other)
  Sender: FDA-Public Use
  Company Number: Z0003000A

PATIENT
  Sex: Male
  Weight: 55 kg

DRUGS (3)
  1. PAZOPANIB [Suspect]
     Indication: RENAL CELL CARCINOMA
     Dosage: 800MG PER DAY
     Route: 048
     Dates: start: 20091110
  2. PHYSIOLOGICAL SALINE [Concomitant]
     Dosage: 500MCL SINGLE DOSE
     Route: 042
     Dates: start: 20100127, end: 20100127
  3. CHLORPHENPYRIDAMINE MALEATE [Concomitant]
     Dosage: 10MCL SINGLE DOSE
     Route: 042
     Dates: start: 20100127, end: 20100127

REACTIONS (1)
  - ANAEMIA [None]
